FAERS Safety Report 6599366-6 (Version None)
Quarter: 2010Q1

REPORT INFORMATION
  Report Type: 
  Country: None (occurrence: None)
  Receive Date: 20100217
  Receipt Date: 20100209
  Transmission Date: 20100710
  Serious: Yes (Death)
  Sender: FDA-Public Use
  Company Number: B0633057A

PATIENT
  Age: 13 Year
  Sex: Female

DRUGS (3)
  1. TOPOTECAN HYDROCHLORIDE [Suspect]
     Indication: ACUTE MYELOID LEUKAEMIA
     Dosage: INTRAVENOUS
     Route: 042
  2. CLADRIBINE          (FORMULATION UNKNOWN) (CLADRIBINE) [Suspect]
     Indication: ACUTE MYELOID LEUKAEMIA
     Dosage: INTRAVENOUS
     Route: 042
  3. NEUPOGEN [Concomitant]

REACTIONS (1)
  - STEM CELL TRANSPLANT [None]
